FAERS Safety Report 25304679 (Version 1)
Quarter: 2025Q2

REPORT INFORMATION
  Report Type: Spontaneous
  Country: US (occurrence: US)
  Receive Date: 20250513
  Receipt Date: 20250513
  Transmission Date: 20250717
  Serious: Yes (Other)
  Sender: APOTEX
  Company Number: US-APOTEX-2025AP007290

PATIENT
  Age: 31 Year
  Sex: Female

DRUGS (1)
  1. CARBIDOPA\LEVODOPA [Suspect]
     Active Substance: CARBIDOPA\LEVODOPA
     Indication: Parkinson^s disease
     Route: 065

REACTIONS (4)
  - Subchorionic haematoma [Recovered/Resolved]
  - Postpartum haemorrhage [Unknown]
  - Arrested labour [Unknown]
  - Maternal exposure during pregnancy [Unknown]
